FAERS Safety Report 8687906 (Version 5)
Quarter: 2019Q3

REPORT INFORMATION
  Report Type: Report from Study
  Country: US (occurrence: US)
  Receive Date: 20120727
  Receipt Date: 20190723
  Transmission Date: 20191005
  Serious: Yes (Hospitalization)
  Sender: FDA-Public Use
  Company Number: US-UCBSA-062028

PATIENT
  Age: 56 Year
  Sex: Female
  Weight: 82 kg

DRUGS (6)
  1. CERTOLIZUMAB PEGOL VS PLACEBO [Suspect]
     Active Substance: CERTOLIZUMAB PEGOL
     Indication: PSORIATIC ARTHROPATHY
     Route: 058
     Dates: start: 20110105, end: 20120718
  2. AMBIEN [Concomitant]
     Active Substance: ZOLPIDEM TARTRATE
     Indication: INSOMNIA
     Dosage: QHS
     Route: 048
     Dates: start: 200301
  3. FLEXERIL [Concomitant]
     Active Substance: CYCLOBENZAPRINE HYDROCHLORIDE
     Indication: INSOMNIA
     Dosage: QHS
     Route: 048
     Dates: start: 200308
  4. FOLIC ACID. [Concomitant]
     Active Substance: FOLIC ACID
     Indication: VITAMIN SUPPLEMENTATION
     Dosage: 10 MG, WEEKLY (QW)
     Route: 048
     Dates: start: 200303
  5. BENTYL [Concomitant]
     Active Substance: DICYCLOMINE HYDROCHLORIDE
     Indication: IRRITABLE BOWEL SYNDROME
     Route: 048
     Dates: start: 200201
  6. ELAVIL [Concomitant]
     Active Substance: AMITRIPTYLINE HYDROCHLORIDE
     Indication: INSOMNIA
     Route: 048
     Dates: start: 199901

REACTIONS (1)
  - Staphylococcal abscess [Recovered/Resolved]

NARRATIVE: CASE EVENT DATE: 20120705
